FAERS Safety Report 10588500 (Version 1)
Quarter: 2014Q4

REPORT INFORMATION
  Report Type: Spontaneous
  Country: FR (occurrence: FR)
  Receive Date: 20141117
  Receipt Date: 20141117
  Transmission Date: 20150529
  Serious: Yes (Hospitalization)
  Sender: FDA-Public Use
  Company Number: FR-SA-2014SA154059

PATIENT
  Age: 67 Year
  Sex: Female

DRUGS (13)
  1. ESOMEPRAZOLE [Concomitant]
     Active Substance: ESOMEPRAZOLE
  2. VALSARTAN. [Concomitant]
     Active Substance: VALSARTAN
  3. HALDOL [Concomitant]
     Active Substance: HALOPERIDOL
  4. LOVENOX [Suspect]
     Active Substance: ENOXAPARIN SODIUM
     Route: 057
  5. EUPRESSYL [Concomitant]
     Active Substance: URAPIDIL
     Dosage: 60 MG
  6. SEROPLEX [Suspect]
     Active Substance: ESCITALOPRAM OXALATE
     Route: 048
  7. LEVOTHYROX [Concomitant]
     Active Substance: LEVOTHYROXINE
     Dosage: 100 MCG, DIVISIBLE TABLET
  8. AMLODIPINE [Concomitant]
     Active Substance: AMLODIPINE BESYLATE
  9. SERESTA [Concomitant]
     Active Substance: OXAZEPAM
     Dosage: 50 MG, DIVISIBLE TABLET
  10. ESIDREX [Concomitant]
     Active Substance: HYDROCHLOROTHIAZIDE
  11. AUGMENTIN [Concomitant]
     Active Substance: AMOXICILLIN\CLAVULANATE POTASSIUM
  12. KARDEGIC [Suspect]
     Active Substance: ASPIRIN LYSINE
     Route: 048
  13. PREVISCAN [Suspect]
     Active Substance: FLUINDIONE
     Route: 048
     Dates: start: 20130125, end: 20130221

REACTIONS (3)
  - Acute kidney injury [Recovered/Resolved]
  - Anaemia [Recovered/Resolved]
  - Abdominal wall haematoma [Recovered/Resolved]

NARRATIVE: CASE EVENT DATE: 201302
